FAERS Safety Report 17304754 (Version 1)
Quarter: 2020Q1

REPORT INFORMATION
  Report Type: Spontaneous
  Country: US (occurrence: US)
  Receive Date: 20200106
  Receipt Date: 20200106
  Transmission Date: 20200409
  Serious: Yes (Other)
  Sender: FDA-Public Use
  Company Number: None

PATIENT
  Sex: Male

DRUGS (15)
  1. PREDNISOLONE. [Concomitant]
     Active Substance: PREDNISOLONE
  2. RIFAMPIN. [Concomitant]
     Active Substance: RIFAMPIN
  3. ATROVASTATIN [Concomitant]
     Active Substance: ATORVASTATIN CALCIUM
  4. ETHAMBUTOL [Concomitant]
     Active Substance: ETHAMBUTOL HYDROCHLORIDE
  5. FLOVENT HFA [Concomitant]
     Active Substance: FLUTICASONE PROPIONATE
  6. ESBRIET [Suspect]
     Active Substance: PIRFENIDONE
     Indication: ASTHMA
     Route: 048
     Dates: start: 20180816, end: 202001
  7. AMLODIPINE [Concomitant]
     Active Substance: AMLODIPINE BESYLATE
  8. CLOPIDOGREL [Concomitant]
     Active Substance: CLOPIDOGREL BISULFATE
  9. KETOROLAC [Concomitant]
     Active Substance: KETOROLAC TROMETHAMINE
  10. OMEPRAZOLE. [Concomitant]
     Active Substance: OMEPRAZOLE
  11. LOSARTAN. [Concomitant]
     Active Substance: LOSARTAN
  12. BENZONATATE. [Concomitant]
     Active Substance: BENZONATATE
  13. PREDNISONE. [Concomitant]
     Active Substance: PREDNISONE
  14. AZITHROMYCIN ANHYDROUS. [Concomitant]
     Active Substance: AZITHROMYCIN ANHYDROUS
  15. NORTRIPTYLIN [Concomitant]
     Active Substance: NORTRIPTYLINE

REACTIONS (1)
  - Blindness [None]
